FAERS Safety Report 12670810 (Version 1)
Quarter: 2016Q3

REPORT INFORMATION
  Report Type: Spontaneous
  Country: US (occurrence: US)
  Receive Date: 20160822
  Receipt Date: 20160822
  Transmission Date: 20161109
  Serious: No
  Sender: FDA-Public Use
  Company Number: US-JAZZ-2016-US-006148

PATIENT
  Age: 24 Year
  Sex: Female

DRUGS (15)
  1. ASPIRIN. [Concomitant]
     Active Substance: ASPIRIN
  2. MULTIPLE VITAMINS [Concomitant]
     Active Substance: VITAMINS
  3. NUVIGIL [Concomitant]
     Active Substance: ARMODAFINIL
  4. ADDERALL [Concomitant]
     Active Substance: AMPHETAMINE ASPARTATE\AMPHETAMINE SULFATE\DEXTROAMPHETAMINE SACCHARATE\DEXTROAMPHETAMINE SULFATE
  5. IMPLANON [Concomitant]
     Active Substance: ETONOGESTREL
  6. VITAMIN D [Concomitant]
     Active Substance: CHOLECALCIFEROL
  7. IBUPROFEN. [Concomitant]
     Active Substance: IBUPROFEN
  8. CLARITIN [Concomitant]
     Active Substance: LORATADINE
  9. XYREM [Suspect]
     Active Substance: SODIUM OXYBATE
     Indication: NARCOLEPSY
     Dosage: 2.25 G, BID
     Route: 048
     Dates: start: 201603, end: 201603
  10. IMITREX [Concomitant]
     Active Substance: SUMATRIPTAN SUCCINATE
  11. XYREM [Suspect]
     Active Substance: SODIUM OXYBATE
     Indication: CATAPLEXY
     Dosage: 3 G, BID
     Route: 048
     Dates: start: 201603
  12. ADDERALL XR [Concomitant]
     Active Substance: AMPHETAMINE ASPARTATE\AMPHETAMINE SULFATE\DEXTROAMPHETAMINE SACCHARATE\DEXTROAMPHETAMINE SULFATE
  13. ALEVE [Concomitant]
     Active Substance: NAPROXEN SODIUM
  14. EXCEDRIN EXTRA STRENGTH [Concomitant]
     Active Substance: ACETAMINOPHEN\ASPIRIN\CAFFEINE
  15. TYLENOL EXTRA STRENGTH [Concomitant]
     Active Substance: ACETAMINOPHEN

REACTIONS (1)
  - Diarrhoea [Not Recovered/Not Resolved]

NARRATIVE: CASE EVENT DATE: 201603
